FAERS Safety Report 5801710-1 (Version None)
Quarter: 2008Q3

REPORT INFORMATION
  Report Type: 
  Country: None (occurrence: None)
  Receive Date: 20080707
  Receipt Date: 20080701
  Transmission Date: 20090109
  Serious: Yes (Other)
  Sender: FDA-Public Use
  Company Number: B0527174A

PATIENT
  Age: 4 Year
  Sex: Male

DRUGS (2)
  1. CLENIL [Suspect]
     Indication: ASTHMA
     Route: 055
     Dates: start: 20080311
  2. ALBUTEROL [Concomitant]
     Indication: ASTHMA
     Route: 055
     Dates: start: 20071023

REACTIONS (2)
  - COUGH [None]
  - DRUG EFFECT DECREASED [None]
